FAERS Safety Report 20102641 (Version 1)
Quarter: 2021Q4

REPORT INFORMATION
  Report Type: Spontaneous
  Country: US (occurrence: US)
  Receive Date: 20211123
  Receipt Date: 20211123
  Transmission Date: 20220304
  Serious: No
  Sender: FDA-Public Use
  Company Number: US-BAYER-2021A252657

PATIENT
  Sex: Male

DRUGS (2)
  1. ALEVE [Suspect]
     Active Substance: NAPROXEN SODIUM
     Indication: Porphyria non-acute
     Dosage: UNK
  2. EVRYSDI [Concomitant]
     Active Substance: RISDIPLAM
     Dosage: UNK

REACTIONS (2)
  - Blister [Recovering/Resolving]
  - Product use in unapproved indication [Unknown]
